FAERS Safety Report 14181010 (Version 1)
Quarter: 2017Q4

REPORT INFORMATION
  Report Type: Spontaneous
  Country: US (occurrence: None)
  Receive Date: 20171110
  Receipt Date: 20171110
  Transmission Date: 20180321
  Serious: No
  Sender: FDA-Public Use
  Company Number: None

PATIENT
  Age: 81 Year
  Sex: Male

DRUGS (15)
  1. VOTRIENT [Suspect]
     Active Substance: PAZOPANIB HYDROCHLORIDE
     Indication: RENAL CANCER
     Route: 048
     Dates: start: 20140328
  2. CYANCOCOBALAM [Concomitant]
  3. CLONIDINE. [Concomitant]
     Active Substance: CLONIDINE
  4. CLOTRIMAZOLE. [Concomitant]
     Active Substance: CLOTRIMAZOLE
  5. PROIAR HFA [Concomitant]
  6. CLORTHALID [Concomitant]
  7. VOTRIENT [Suspect]
     Active Substance: PAZOPANIB HYDROCHLORIDE
     Indication: HEPATIC CANCER
     Route: 048
     Dates: start: 20140328
  8. ALPRAZOLAM. [Concomitant]
     Active Substance: ALPRAZOLAM
  9. POTASSIUM [Concomitant]
     Active Substance: POTASSIUM
  10. XARELTO [Concomitant]
     Active Substance: RIVAROXABAN
  11. AMLODIPINE [Concomitant]
     Active Substance: AMLODIPINE BESYLATE
  12. MUCUSRELIEF TAB [Concomitant]
  13. FLOMAX [Concomitant]
     Active Substance: TAMSULOSIN HYDROCHLORIDE
  14. COENZYME Q10 [Concomitant]
     Active Substance: UBIDECARENONE
  15. LOVASTATIN. [Concomitant]
     Active Substance: LOVASTATIN

REACTIONS (2)
  - Pleuritic pain [None]
  - Pain [None]
